FAERS Safety Report 14681427 (Version 2)
Quarter: 2018Q1

REPORT INFORMATION
  Report Type: Spontaneous
  Country: US (occurrence: US)
  Receive Date: 20180326
  Receipt Date: 20180326
  Transmission Date: 20180509
  Serious: Yes (Death, Hospitalization)
  Sender: FDA-Public Use
  Company Number: US-CELGENEUS-USA-20180308346

PATIENT
  Age: 69 Year
  Sex: Male

DRUGS (2)
  1. POMALYST [Suspect]
     Active Substance: POMALIDOMIDE
     Indication: PLASMA CELL MYELOMA
     Dosage: 4 MILLIGRAM
     Route: 048
     Dates: start: 20180205, end: 20180219
  2. TETRACYCLINE [Concomitant]
     Active Substance: TETRACYCLINE
     Indication: RASH
     Route: 065

REACTIONS (6)
  - Metabolic encephalopathy [Unknown]
  - Pancytopenia [Unknown]
  - Hypercalcaemia [Unknown]
  - Febrile neutropenia [Unknown]
  - Death [Fatal]
  - Acute kidney injury [Unknown]

NARRATIVE: CASE EVENT DATE: 20180223
